FAERS Safety Report 9225115 (Version 1)
Quarter: 2013Q2

REPORT INFORMATION
  Report Type: Report from Study
  Country: SE (occurrence: SE)
  Receive Date: 20130411
  Receipt Date: 20130411
  Transmission Date: 20140414
  Serious: Yes (Hospitalization)
  Sender: FDA-Public Use
  Company Number: SE-ASTRAZENECA-2013SE21312

PATIENT
  Age: 27459 Day
  Sex: Male

DRUGS (17)
  1. AZD6140 [Suspect]
     Indication: CORONARY ARTERY DISEASE
     Route: 048
     Dates: start: 20110930, end: 20111221
  2. AZD6140 [Suspect]
     Indication: CORONARY ARTERY DISEASE
     Route: 048
     Dates: start: 20120101, end: 20120110
  3. AZD6140 [Suspect]
     Indication: CORONARY ARTERY DISEASE
     Route: 048
     Dates: start: 20120202, end: 20130321
  4. ASPIRIN [Suspect]
     Route: 048
  5. T EZETROL [Concomitant]
     Indication: HYPERCHOLESTEROLAEMIA
     Route: 048
  6. T NEXIUM [Concomitant]
     Indication: GASTROOESOPHAGEAL REFLUX PROPHYLAXIS
     Route: 048
  7. T IMDUR [Concomitant]
     Indication: ANGINA PECTORIS
     Route: 048
  8. T EMCONCOR [Concomitant]
     Indication: HYPERTENSION
     Route: 048
  9. T AMLODIPIN [Concomitant]
     Indication: HYPERTENSION
     Route: 048
     Dates: end: 20130321
  10. T RAMIPRIL [Concomitant]
     Indication: HYPERTENSION
     Route: 048
  11. T LIPITOR [Concomitant]
     Indication: HYPERCHOLESTEROLAEMIA
     Route: 048
  12. TH RHINOCORT [Concomitant]
     Indication: ASTHMA
     Route: 055
  13. TH PULMICORT [Concomitant]
     Indication: ASTHMA
     Route: 055
  14. SEREVENT DISCUS [Concomitant]
     Indication: ASTHMA
     Route: 048
  15. NITROLINGUAL [Concomitant]
     Indication: ANGINA PECTORIS
     Route: 048
  16. T METFORMIN [Concomitant]
     Indication: TYPE 2 DIABETES MELLITUS
     Route: 048
     Dates: start: 20130207
  17. NOVOMIX 30 [Concomitant]
     Indication: TYPE 2 DIABETES MELLITUS
     Route: 058
     Dates: start: 20130207

REACTIONS (1)
  - Iron deficiency anaemia [Not Recovered/Not Resolved]
